FAERS Safety Report 11987787 (Version 1)
Quarter: 2016Q1

REPORT INFORMATION
  Report Type: Spontaneous
  Country: PR (occurrence: PR)
  Receive Date: 20160202
  Receipt Date: 20160202
  Transmission Date: 20160526
  Serious: No
  Sender: FDA-Public Use
  Company Number: PR-JNJFOC-20151126756

PATIENT
  Sex: Female
  Weight: 54 kg

DRUGS (23)
  1. IMBRUVICA [Suspect]
     Active Substance: IBRUTINIB
     Indication: WALDENSTROM^S MACROGLOBULINAEMIA
     Route: 048
     Dates: start: 20150307
  2. IMBRUVICA [Suspect]
     Active Substance: IBRUTINIB
     Indication: NON-HODGKIN^S LYMPHOMA
     Route: 048
     Dates: start: 20150307
  3. PREDNISONE. [Concomitant]
     Active Substance: PREDNISONE
     Route: 048
     Dates: start: 20150115
  4. TOLTERODINE L-TARTRATE [Concomitant]
     Active Substance: TOLTERODINE TARTRATE
     Route: 048
     Dates: start: 20150122
  5. IMMUNOGLOBULIN G HUMAN [Concomitant]
     Active Substance: HUMAN IMMUNOGLOBULIN G
  6. CIPRO [Concomitant]
     Active Substance: CIPROFLOXACIN HYDROCHLORIDE
     Indication: URINARY TRACT INFECTION
     Dates: start: 20120605
  7. CYANOCOBALAMIN. [Concomitant]
     Active Substance: CYANOCOBALAMIN
     Route: 030
  8. TORADOL [Concomitant]
     Active Substance: KETOROLAC TROMETHAMINE
  9. MEGACE [Concomitant]
     Active Substance: MEGESTROL ACETATE
     Route: 048
     Dates: start: 20150219, end: 20150404
  10. FENTANYL. [Concomitant]
     Active Substance: FENTANYL
  11. ZOMETA [Concomitant]
     Active Substance: ZOLEDRONIC ACID
  12. LEVAQUIN [Concomitant]
     Active Substance: LEVOFLOXACIN
  13. DECADRON [Concomitant]
     Active Substance: DEXAMETHASONE
     Dates: start: 20120322, end: 20120322
  14. OMEPRAZOLE. [Concomitant]
     Active Substance: OMEPRAZOLE
  15. NEULASTA [Concomitant]
     Active Substance: PEGFILGRASTIM
  16. MESNA. [Concomitant]
     Active Substance: MESNA
  17. IMBRUVICA [Suspect]
     Active Substance: IBRUTINIB
     Indication: CHRONIC LYMPHOCYTIC LEUKAEMIA
     Route: 048
     Dates: start: 20150307
  18. VERAPAMIL HYDROCHLORIDE. [Concomitant]
     Active Substance: VERAPAMIL HYDROCHLORIDE
     Route: 048
     Dates: start: 20131209
  19. TRAMADOL HYDROCHLORIDE. [Concomitant]
     Active Substance: TRAMADOL HYDROCHLORIDE
  20. MEDROL [Concomitant]
     Active Substance: METHYLPREDNISOLONE
  21. DECADRON [Concomitant]
     Active Substance: DEXAMETHASONE
     Dosage: Q WEEKLY
     Dates: start: 20121107
  22. IMODIUM [Concomitant]
     Active Substance: LOPERAMIDE HYDROCHLORIDE
  23. NAPROXEN. [Concomitant]
     Active Substance: NAPROXEN

REACTIONS (12)
  - Nail disorder [Not Recovered/Not Resolved]
  - Monoclonal immunoglobulin present [Recovered/Resolved]
  - Muscle spasms [Not Recovered/Not Resolved]
  - Alopecia [Not Recovered/Not Resolved]
  - Light chain analysis increased [Recovering/Resolving]
  - Neuropathy peripheral [Not Recovered/Not Resolved]
  - Musculoskeletal discomfort [Unknown]
  - Dermatitis infected [Unknown]
  - Rash pruritic [Unknown]
  - Thyroid disorder [Unknown]
  - Protein total abnormal [Unknown]
  - Dry skin [Unknown]

NARRATIVE: CASE EVENT DATE: 2015
